FAERS Safety Report 7276625-5 (Version None)
Quarter: 2011Q1

REPORT INFORMATION
  Report Type: 
  Country: None (occurrence: None)
  Receive Date: 20110204
  Receipt Date: 20101229
  Transmission Date: 20110831
  Serious: Yes (Other)
  Sender: FDA-Public Use
  Company Number: US-BAYER-201037734NA

PATIENT
  Sex: Female

DRUGS (37)
  1. ENALAPRIL MALEATE [Concomitant]
     Dosage: 20 MG, UNK
     Dates: start: 20051116
  2. ENALAPRIL MALEATE [Concomitant]
     Dosage: UNK
     Dates: start: 20051214
  3. COZAAR [Concomitant]
     Dosage: 100 MG, UNK
     Dates: start: 20041207
  4. UNCODEABLE ^UNCLASSIFIABLE^ [Concomitant]
     Dosage: 30 MG, UNK
  5. YASMIN [Suspect]
     Indication: ACNE
     Dosage: UNK
     Dates: start: 20050101, end: 20060101
  6. IBUPROFEN [Concomitant]
     Dosage: 400 MG, UNK
     Dates: start: 20050210
  7. ENALAPRIL MALEATE [Concomitant]
     Dosage: 20 MG, UNK
     Dates: start: 20050831
  8. ENALAPRIL MALEATE [Concomitant]
     Dosage: UNK
     Dates: start: 20060508
  9. ISOSORBIDE DINITRATE [Concomitant]
  10. IBUPROFEN [Concomitant]
     Dosage: 800 MG, UNK
     Dates: start: 20050401
  11. ENALAPRIL MALEATE [Concomitant]
     Dosage: 20 MG, UNK
     Dates: start: 20051012
  12. COZAAR [Concomitant]
     Dosage: 100 MG, UNK
     Dates: start: 20041105
  13. OCELLA [Suspect]
     Indication: ACNE
  14. SULINDAC [Concomitant]
     Dosage: 200 MG, UNK
     Dates: start: 20081031
  15. ENALAPRIL MALEATE [Concomitant]
     Dosage: UNK
     Dates: start: 20070101
  16. TOPROL-XL [Concomitant]
     Dosage: 200 MG, UNK
  17. CLONIDINE [Concomitant]
     Dosage: 0.3 MG, UNK
  18. KETOPROFEN [Concomitant]
     Dosage: 75 MG, UNK
     Dates: start: 20060106
  19. ENALAPRIL MALEATE [Concomitant]
     Dosage: UNK
     Dates: start: 20060801
  20. KETOPROFEN [Concomitant]
     Dosage: 75 MG, UNK
     Dates: start: 20060308
  21. KETOPROFEN [Concomitant]
     Dosage: 75 MG, UNK
     Dates: start: 20070201
  22. ENALAPRIL MALEATE [Concomitant]
     Dosage: 20 MG, UNK
     Dates: start: 20060308
  23. MOEXIPRIL HYDROCHLORIDE [Concomitant]
     Dosage: UNK
     Dates: start: 20050506
  24. ENALAPRIL MALEATE [Concomitant]
     Dosage: UNK
     Dates: start: 20061002
  25. NITROGLYCERIN [Concomitant]
     Dosage: 0.4 MG, UNK
  26. NAPROXEN [Concomitant]
     Dosage: 375 MG, UNK
     Dates: start: 20070201
  27. MOEXIPRIL HYDROCHLORIDE [Concomitant]
     Dosage: UNK
     Dates: start: 20050112
  28. ENALAPRIL MALEATE [Concomitant]
     Dosage: UNK
     Dates: start: 20070702
  29. COZAAR [Concomitant]
     Dosage: 100 MG, UNK
     Dates: start: 20050104
  30. METOPROLOL TARTRATE [Concomitant]
     Dosage: 50 MG, UNK
  31. YAZ [Suspect]
     Indication: ACNE
     Dosage: UNK
     Dates: start: 20050101, end: 20060101
  32. IBUPROFEN [Concomitant]
     Dosage: 800 MG, UNK
     Dates: start: 20050201
  33. IBUPROFEN [Concomitant]
     Dosage: 800 MG, UNK
     Dates: start: 20050311
  34. NAPROXEN [Concomitant]
     Dosage: 500 MG, UNK
     Dates: start: 20090911
  35. KETOPROFEN [Concomitant]
     Dosage: 75 MG, UNK
     Dates: start: 20051214
  36. SULINDAC [Concomitant]
     Dosage: 200 MG, UNK
     Dates: start: 20090416
  37. COREG [Concomitant]
     Dosage: 6.25 MG, UNK

REACTIONS (1)
  - MYOCARDIAL INFARCTION [None]
